FAERS Safety Report 8136366-9 (Version None)
Quarter: 2012Q1

REPORT INFORMATION
  Report Type: 
  Country: None (occurrence: None)
  Receive Date: 20120214
  Receipt Date: 20120213
  Transmission Date: 20120608
  Serious: No
  Sender: FDA-Public Use
  Company Number: US-PFIZER INC-2012005053

PATIENT
  Sex: Female
  Weight: 85 kg

DRUGS (5)
  1. CHANTIX [Suspect]
     Dosage: 1 MG, 2X/DAY
     Route: 048
     Dates: end: 20120109
  2. CHANTIX [Suspect]
     Dosage: 0.5 MG, 2X/DAY
     Route: 048
  3. TETRACYCLINE [Concomitant]
     Indication: NASOPHARYNGITIS
     Dosage: 250 MG, UNK
  4. INDERAL LA [Concomitant]
     Indication: MIGRAINE
     Dosage: 120 MG, DAILY
  5. CHANTIX [Suspect]
     Indication: SMOKING CESSATION THERAPY
     Dosage: 0.5 MG, 1X/DAY
     Route: 048
     Dates: start: 20111228

REACTIONS (3)
  - HYPERSENSITIVITY [None]
  - INSOMNIA [None]
  - ABNORMAL DREAMS [None]
